FAERS Safety Report 7584843-1 (Version None)
Quarter: 2011Q2

REPORT INFORMATION
  Report Type: 
  Country: None (occurrence: None)
  Receive Date: 20110630
  Receipt Date: 20110627
  Transmission Date: 20111010
  Serious: Yes (Death)
  Sender: FDA-Public Use
  Company Number: PHHY2011US57390

PATIENT
  Sex: Male
  Weight: 80.272 kg

DRUGS (6)
  1. GLEEVEC [Suspect]
     Indication: NEOPLASM MALIGNANT
     Dosage: 100 MG, DAILY
     Route: 048
     Dates: start: 20110405
  2. ALPHAGAN [Concomitant]
  3. TRAVATAN [Concomitant]
  4. AVAPRO [Concomitant]
  5. TIMOLOL MALEATE [Concomitant]
  6. METOPROLOL TARTRATE [Concomitant]

REACTIONS (1)
  - DEATH [None]
